FAERS Safety Report 4633006-8 (Version None)
Quarter: 2005Q2

REPORT INFORMATION
  Report Type: 
  Country: None (occurrence: None)
  Receive Date: 20050412
  Receipt Date: 20050401
  Transmission Date: 20051028
  Serious: Yes (Death)
  Sender: FDA-Public Use
  Company Number: US-JNJFOC-20050400742

PATIENT
  Age: 37 Year
  Sex: Female

DRUGS (9)
  1. SPORANOX [Suspect]
     Dosage: PROTOCOL: DAY 3-14
     Route: 042
  2. SPORANOX [Suspect]
     Indication: ANTIFUNGAL PROPHYLAXIS
     Dosage: PROTOCOL: LOADING DOSE DAY 1-2
     Route: 042
  3. SPORANOX [Suspect]
     Dosage: PROTOCOL: DAY 15-100
     Route: 049
  4. STEROIDS [Concomitant]
  5. CYCLOSPORINE [Concomitant]
  6. CIPROFLOXACIN [Concomitant]
  7. GANCICLOVIR [Concomitant]
  8. BACTRIM [Concomitant]
  9. BACTRIM [Concomitant]

REACTIONS (2)
  - GRAFT VERSUS HOST DISEASE [None]
  - INTERSTITIAL LUNG DISEASE [None]
